FAERS Safety Report 20862235 (Version 1)
Quarter: 2022Q2

REPORT INFORMATION
  Report Type: Spontaneous
  Country: JP (occurrence: JP)
  Receive Date: 20220523
  Receipt Date: 20220523
  Transmission Date: 20220721
  Serious: Yes (Hospitalization, Other)
  Sender: FDA-Public Use
  Company Number: JP-BAUSCH-BL-2022-012502

PATIENT
  Age: 39 Year
  Sex: Male

DRUGS (3)
  1. HYDROCORTISONE BUTYRATE [Suspect]
     Active Substance: HYDROCORTISONE BUTYRATE
     Indication: Dermatitis atopic
     Route: 061
  2. DIFLUPREDNATE [Suspect]
     Active Substance: DIFLUPREDNATE
     Indication: Dermatitis atopic
     Route: 061
  3. RINDERON VG [Suspect]
     Active Substance: BETAMETHASONE VALERATE\GENTAMICIN SULFATE
     Indication: Dermatitis atopic
     Route: 061

REACTIONS (3)
  - Open angle glaucoma [Recovered/Resolved]
  - Vitreous prolapse [Recovered/Resolved]
  - Intraocular pressure increased [Recovered/Resolved]
